FAERS Safety Report 10527433 (Version 1)
Quarter: 2014Q4

REPORT INFORMATION
  Report Type: Spontaneous
  Country: US (occurrence: None)
  Receive Date: 20141016
  Receipt Date: 20141016
  Transmission Date: 20150528
  Serious: No
  Sender: FDA-Public Use
  Company Number: None

PATIENT
  Age: 62 Year
  Sex: Male
  Weight: 99.79 kg

DRUGS (1)
  1. HUMIRA [Suspect]
     Active Substance: ADALIMUMAB
     Indication: RHEUMATOID ARTHRITIS
     Dosage: 40 MG ?BI-WEEKLY?GIVEN INTO/UNDER THE SKIN
     Dates: start: 20140101, end: 20141015

REACTIONS (3)
  - Product contamination physical [None]
  - Product packaging quantity issue [None]
  - Product quality issue [None]

NARRATIVE: CASE EVENT DATE: 20141015
